FAERS Safety Report 18766945 (Version 1)
Quarter: 2021Q1

REPORT INFORMATION
  Report Type: Spontaneous
  Country: US (occurrence: US)
  Receive Date: 20210121
  Receipt Date: 20210121
  Transmission Date: 20210419
  Serious: Yes (Life-Threatening, Hospitalization, Other)
  Sender: FDA-Public Use
  Company Number: US-SUN PHARMACEUTICAL INDUSTRIES LTD-2021R1-276440

PATIENT
  Age: 28 Year
  Sex: Female

DRUGS (2)
  1. CIMETIDINE [Suspect]
     Active Substance: CIMETIDINE
     Indication: DRUG WITHDRAWAL SYNDROME
     Dosage: 2000 MILLIGRAM, DAILY
     Route: 065
  2. LOPERAMIDE [Suspect]
     Active Substance: LOPERAMIDE
     Indication: DRUG WITHDRAWAL SYNDROME
     Dosage: UNK, DAILY (400?600 MILLIGRAM)
     Route: 065

REACTIONS (2)
  - Drug abuse [Unknown]
  - Arrhythmia [Recovering/Resolving]
